FAERS Safety Report 6310874-5 (Version None)
Quarter: 2009Q3

REPORT INFORMATION
  Report Type: 
  Country: None (occurrence: None)
  Receive Date: 20090812
  Receipt Date: 20090728
  Transmission Date: 20100115
  Serious: Yes (Other)
  Sender: FDA-Public Use
  Company Number: DSJ-2009-09847

PATIENT
  Age: 34 Year
  Sex: Male
  Weight: 65.7 kg

DRUGS (4)
  1. OLMESARTAN MEDOXOMIL [Suspect]
     Indication: HYPERTENSION
     Dosage: 20 MG, PER ORAL
     Route: 048
     Dates: start: 20090101
  2. CARVEDILOL [Suspect]
     Indication: HYPERTENSION
     Dosage: (2 IN 1 D), PER ORAL,  20 MG (10 MG,2 IN 1 D), PER ORAL
     Route: 048
     Dates: start: 20080901, end: 20090401
  3. DOXAZOSIN MESYLATE [Suspect]
     Indication: HYPERTENSION
     Dosage: 2 MG,PER ORAL
     Route: 048
     Dates: start: 20090401
  4. ASPARA K (ASPARTATE POTASSIUM) (ASPARTATE POTASSIUM) [Concomitant]

REACTIONS (4)
  - HORMONE LEVEL ABNORMAL [None]
  - HYPOKALAEMIA [None]
  - MULTI-ORGAN DISORDER [None]
  - TREATMENT NONCOMPLIANCE [None]
